FAERS Safety Report 9652038 (Version 1)
Quarter: 2013Q4

REPORT INFORMATION
  Report Type: Report from Study
  Country: NL (occurrence: NL)
  Receive Date: 20131029
  Receipt Date: 20131029
  Transmission Date: 20140711
  Serious: Yes (Hospitalization)
  Sender: FDA-Public Use
  Company Number: NL-B.I. PHARMACEUTICALS,INC./RIDGEFIELD-2013-BI-33439NL

PATIENT
  Age: 59 Year
  Sex: Female
  Weight: 69 kg

DRUGS (3)
  1. BISACODYL [Suspect]
     Indication: COLONOSCOPY
     Dates: start: 20131005, end: 20131007
  2. PICOPREP [Suspect]
     Indication: COLONOSCOPY
     Dosage: 32.2 G
     Dates: start: 20131006, end: 20131007
  3. I-GLUTAMINE [Concomitant]
     Dosage: 500 MG
     Dates: start: 20110902

REACTIONS (5)
  - Depressed level of consciousness [Not Recovered/Not Resolved]
  - Vomiting [Not Recovered/Not Resolved]
  - Drug interaction [Not Recovered/Not Resolved]
  - Abdominal pain [Unknown]
  - Nausea [Unknown]
